FAERS Safety Report 22071624 (Version 4)
Quarter: 2024Q1

REPORT INFORMATION
  Report Type: Spontaneous
  Country: US (occurrence: US)
  Receive Date: 20230307
  Receipt Date: 20240131
  Transmission Date: 20240409
  Serious: No
  Sender: FDA-Public Use
  Company Number: US-PFIZER INC-PV202300043772

PATIENT
  Age: 50 Year
  Sex: Male

DRUGS (1)
  1. BOSULIF [Suspect]
     Active Substance: BOSUTINIB MONOHYDRATE
     Indication: Chronic myeloid leukaemia
     Dosage: 400 MG, DAILY (TAKE 4 TABLETS DAILY/TAKE WITH FOOD/SWALLOW TABLETS WHOLE; DO NOT CRUSH/CUT TABLETS)
     Route: 048
     Dates: end: 20230905

REACTIONS (1)
  - Full blood count abnormal [Unknown]
